FAERS Safety Report 9995725 (Version 1)
Quarter: 2014Q1

REPORT INFORMATION
  Report Type: Spontaneous
  Country: US (occurrence: None)
  Receive Date: 20140310
  Receipt Date: 20140310
  Transmission Date: 20141002
  Serious: Yes (Death)
  Sender: FDA-Public Use
  Company Number: None

PATIENT
  Age: 66 Year
  Sex: Female
  Weight: 68.04 kg

DRUGS (2)
  1. FANAPT [Suspect]
     Indication: SCHIZOPHRENIA
     Route: 048
     Dates: start: 20130902, end: 20131219
  2. NUEDEXTA [Suspect]
     Indication: ANXIETY
     Route: 048
     Dates: start: 20130606, end: 20131219

REACTIONS (5)
  - Electrocardiogram QT prolonged [None]
  - Pneumonia [None]
  - Fall [None]
  - Lymphoedema [None]
  - Sudden cardiac death [None]
